FAERS Safety Report 5034614-5 (Version None)
Quarter: 2006Q2

REPORT INFORMATION
  Report Type: 
  Country: None (occurrence: None)
  Receive Date: 20060621
  Receipt Date: 20060613
  Transmission Date: 20061013
  Serious: Yes (Hospitalization)
  Sender: FDA-Public Use
  Company Number: FR-2006-015380

PATIENT
  Age: 84 Year
  Sex: Female

DRUGS (6)
  1. SOTALOL HYDROCHLORIDE [Suspect]
     Indication: ESSENTIAL HYPERTENSION
     Dosage: 80 MG, 1X/DAY, ORAL
     Route: 048
     Dates: start: 20050915
  2. COTAREG                (VALSARTAN, HYDROCHLOROTHIAZIDE) [Suspect]
     Indication: ESSENTIAL HYPERTENSION
     Dosage: 160 MG, 1X/DAY, ORAL
     Route: 048
     Dates: start: 20050915
  3. MIANSERIN    (MIANSERIN HYDROCHLORIDE) [Concomitant]
  4. AERIUS                (DESLORATIDINE) [Concomitant]
  5. NOCTRAN 10    (ACEPROMAZINE, CLORAZEPATE DIPOTASSIUM, ACEPROMETAZINE) [Concomitant]
  6. LAROXYL [Concomitant]

REACTIONS (1)
  - PSORIASIS [None]
